FAERS Safety Report 5265001-2 (Version None)
Quarter: 2007Q1

REPORT INFORMATION
  Report Type: 
  Country: None (occurrence: None)
  Receive Date: 20061122
  Receipt Date: 20061024
  Transmission Date: 20070707
  Serious: Yes (Hospitalization)
  Sender: FDA-Public Use
  Company Number: US-JNJFOC-20060803174

PATIENT
  Age: 23 Year
  Sex: Male
  Weight: 86.1834 kg

DRUGS (4)
  1. RISPERDAL CONSTA [Suspect]
     Indication: BIPOLAR I DISORDER
     Dosage: 37.5 MG, 1 IN 2 WEEK, INTRA-MUSCULAR
     Route: 030
     Dates: start: 20060624
  2. DEPAKOTE (VALPROATE SEMISODIUM) TABLET [Concomitant]
  3. TRAZODONE HCL [Concomitant]
  4. INDERAL [Concomitant]

REACTIONS (6)
  - DELUSION [None]
  - HALLUCINATION [None]
  - OEDEMA PERIPHERAL [None]
  - PARANOIA [None]
  - SOMNOLENCE [None]
  - TREMOR [None]
